FAERS Safety Report 14553057 (Version 3)
Quarter: 2018Q4

REPORT INFORMATION
  Report Type: Spontaneous
  Country: US (occurrence: US)
  Receive Date: 20180220
  Receipt Date: 20181115
  Transmission Date: 20190204
  Serious: Yes (Disabling)
  Sender: FDA-Public Use
  Company Number: US-PFIZER INC-2018069223

PATIENT
  Age: 58 Year
  Sex: Female

DRUGS (4)
  1. IBRANCE [Suspect]
     Active Substance: PALBOCICLIB
     Indication: BREAST CANCER METASTATIC
     Dosage: 125 MG, CYCLIC (1 CAPSULE DAILY FOR 21 DAYS, THEN OFF FOR 7 DAYS)
     Route: 048
     Dates: start: 201510
  2. ZEPATIER [Concomitant]
     Active Substance: ELBASVIR\GRAZOPREVIR
     Indication: HEPATITIS C
     Dosage: 1 DF, 1X/DAY (1 TABLET ONCE A DAY FOR 12 WEEKS)
     Route: 048
     Dates: start: 201709, end: 201711
  3. EXEMESTANE. [Suspect]
     Active Substance: EXEMESTANE
     Indication: BREAST CANCER METASTATIC
     Dosage: 25 MG, 1X/DAY (1 TABLET EVERY DAY)
     Route: 048
     Dates: start: 2015, end: 2015
  4. AROMASIN [Suspect]
     Active Substance: EXEMESTANE
     Indication: BREAST CANCER METASTATIC
     Dosage: 25 MG, 1X/DAY (1 TABLET EVERY DAY)
     Route: 048
     Dates: start: 2015

REACTIONS (6)
  - White blood cell count decreased [Unknown]
  - Neuropathy peripheral [Not Recovered/Not Resolved]
  - Red blood cell count decreased [Unknown]
  - Blood cholesterol increased [Not Recovered/Not Resolved]
  - Fatigue [Not Recovered/Not Resolved]
  - Blood calcium decreased [Unknown]

NARRATIVE: CASE EVENT DATE: 201510
